FAERS Safety Report 7206325 (Version 7)
Quarter: 2014Q4

REPORT INFORMATION
  Report Type: Report from Study
  Country: US (occurrence: US)
  Receive Date: 20091209
  Receipt Date: 20141031
  Transmission Date: 20150529
  Serious: Yes (Other)
  Sender: FDA-Public Use
  Company Number: US-BIOGENIDEC-2009BI039188

PATIENT
  Sex: Female
  Weight: 61 kg

DRUGS (1)
  1. AVONEX [Suspect]
     Active Substance: INTERFERON BETA-1A
     Indication: MULTIPLE SCLEROSIS
     Route: 030
     Dates: start: 19980401

REACTIONS (5)
  - Herpes zoster [Recovered/Resolved]
  - Stress [Recovered/Resolved]
  - Pain [Recovered/Resolved]
  - Fatigue [Recovered/Resolved]
  - Non-Hodgkin^s lymphoma [Recovered/Resolved]

NARRATIVE: CASE EVENT DATE: 1998
